FAERS Safety Report 10146389 (Version 1)
Quarter: 2014Q2

REPORT INFORMATION
  Report Type: Spontaneous
  Country: DE (occurrence: DE)
  Receive Date: 20140501
  Receipt Date: 20140501
  Transmission Date: 20141212
  Serious: Yes (Other)
  Sender: FDA-Public Use
  Company Number: DE-PFIZER INC-2014117444

PATIENT
  Age: 49 Year
  Sex: Male

DRUGS (2)
  1. TREVILOR RETARD [Suspect]
     Dosage: UNK
  2. METFORMIN HCL [Suspect]
     Indication: DIABETES MELLITUS
     Dosage: UNK

REACTIONS (6)
  - Renal failure [Unknown]
  - Toxicity to various agents [Unknown]
  - Lactic acidosis [Unknown]
  - Blood creatine phosphokinase increased [Unknown]
  - Transaminases increased [Unknown]
  - Rhabdomyolysis [Unknown]
